FAERS Safety Report 10220260 (Version 1)
Quarter: 2014Q2

REPORT INFORMATION
  Report Type: Spontaneous
  Country: DE (occurrence: DE)
  Receive Date: 20140606
  Receipt Date: 20140606
  Transmission Date: 20141212
  Serious: Yes (Life-Threatening, Hospitalization)
  Sender: FDA-Public Use
  Company Number: DE-DRREDDYS-GER/GER/14/0040829

PATIENT
  Age: 26 Year
  Sex: Male

DRUGS (13)
  1. OLANZAPINE [Suspect]
     Indication: PRODUCT USED FOR UNKNOWN INDICATION
     Route: 048
     Dates: start: 20131223, end: 20140109
  2. OLANZAPINE [Suspect]
     Route: 048
     Dates: start: 20140110, end: 20140122
  3. OLANZAPINE [Suspect]
     Route: 048
     Dates: start: 20140123, end: 20140213
  4. OLANZAPINE [Suspect]
     Route: 048
     Dates: start: 20140214, end: 20140216
  5. QUETIAPINE [Suspect]
     Indication: PRODUCT USED FOR UNKNOWN INDICATION
  6. CIPRALEX [Suspect]
     Indication: PRODUCT USED FOR UNKNOWN INDICATION
     Route: 048
     Dates: start: 20131206, end: 20131208
  7. CIPRALEX [Suspect]
     Route: 048
     Dates: start: 20131209, end: 20131219
  8. CIPRALEX [Suspect]
     Route: 048
     Dates: start: 20131220, end: 20140107
  9. CIPRALEX [Suspect]
     Route: 048
     Dates: start: 20140108, end: 20140227
  10. LORAZEPAM [Concomitant]
     Indication: PRODUCT USED FOR UNKNOWN INDICATION
     Route: 048
     Dates: start: 20131219, end: 20140113
  11. LORAZEPAM [Concomitant]
     Route: 048
     Dates: start: 20140114, end: 20140116
  12. LORAZEPAM [Concomitant]
     Route: 048
     Dates: start: 20140117, end: 20140127
  13. LORAZEPAM [Concomitant]
     Route: 048
     Dates: start: 20140128, end: 20140203

REACTIONS (1)
  - Weight increased [Not Recovered/Not Resolved]
